FAERS Safety Report 14757251 (Version 1)
Quarter: 2018Q2

REPORT INFORMATION
  Report Type: Spontaneous
  Country: US (occurrence: US)
  Receive Date: 20180408
  Receipt Date: 20180408
  Transmission Date: 20180711
  Serious: Yes (Disabling)
  Sender: FDA-Public Use
  Company Number: None

PATIENT
  Age: 13 Year
  Sex: Male
  Weight: 42.75 kg

DRUGS (1)
  1. MEMBERS MARK IBUPROFEN [Suspect]
     Active Substance: IBUPROFEN
     Indication: MIGRAINE
     Dosage: ?          QUANTITY:1 TABLET(S);?
     Route: 048
     Dates: start: 20170401, end: 20180401

REACTIONS (1)
  - Alopecia [None]

NARRATIVE: CASE EVENT DATE: 20170601
